FAERS Safety Report 16956721 (Version 2)
Quarter: 2019Q4

REPORT INFORMATION
  Report Type: Report from Study
  Country: US (occurrence: US)
  Receive Date: 20191024
  Receipt Date: 20191112
  Transmission Date: 20200122
  Serious: Yes (Hospitalization)
  Sender: FDA-Public Use
  Company Number: US-EISAI MEDICAL RESEARCH-EC-2019-057897

PATIENT
  Age: 21 Year
  Sex: Female

DRUGS (8)
  1. PROMETHAZINE [Concomitant]
     Active Substance: PROMETHAZINE HYDROCHLORIDE
  2. SENNA [Concomitant]
     Active Substance: SENNA LEAF\SENNOSIDES\SENNOSIDES A AND B
  3. LENVIMA [Suspect]
     Active Substance: LENVATINIB
     Indication: OVARIAN CANCER
     Route: 048
     Dates: start: 20190606, end: 201907
  4. ELIQUIS [Concomitant]
     Active Substance: APIXABAN
  5. FENTANYL. [Concomitant]
     Active Substance: FENTANYL
  6. LENVIMA [Suspect]
     Active Substance: LENVATINIB
     Route: 048
     Dates: start: 201907, end: 2019
  7. KEYTRUDA [Concomitant]
     Active Substance: PEMBROLIZUMAB
  8. DESIPRAMINE [Concomitant]
     Active Substance: DESIPRAMINE

REACTIONS (13)
  - Dyspnoea [Not Recovered/Not Resolved]
  - Product use in unapproved indication [Not Recovered/Not Resolved]
  - Diarrhoea [Recovered/Resolved]
  - Malignant neoplasm progression [Not Recovered/Not Resolved]
  - Asthenia [Recovering/Resolving]
  - Pulmonary embolism [Recovering/Resolving]
  - Abdominal pain upper [Not Recovered/Not Resolved]
  - Constipation [Recovered/Resolved]
  - Nasopharyngitis [Not Recovered/Not Resolved]
  - Fatigue [Recovering/Resolving]
  - Dysphonia [Not Recovered/Not Resolved]
  - Hypertension [Not Recovered/Not Resolved]
  - Nausea [Not Recovered/Not Resolved]

NARRATIVE: CASE EVENT DATE: 2019
